FAERS Safety Report 11686850 (Version 10)
Quarter: 2017Q4

REPORT INFORMATION
  Report Type: Spontaneous
  Country: US (occurrence: US)
  Receive Date: 20151030
  Receipt Date: 20171017
  Transmission Date: 20180320
  Serious: Yes (Hospitalization)
  Sender: FDA-Public Use
  Company Number: US-ACTELION-A-US2011-55146

PATIENT
  Age: 31 Year
  Sex: Female
  Weight: 149.66 kg

DRUGS (9)
  1. TRACLEER [Suspect]
     Active Substance: BOSENTAN
     Indication: PULMONARY ARTERIAL HYPERTENSION
     Dosage: 125 MG, BID
     Route: 048
     Dates: start: 20110729
  2. SILDENAFIL. [Concomitant]
     Active Substance: SILDENAFIL
  3. TRACLEER [Suspect]
     Active Substance: BOSENTAN
     Dosage: UNK
     Route: 048
     Dates: start: 20110729
  4. BETADINE [Suspect]
     Active Substance: POVIDONE-IODINE
     Indication: PRODUCT USED FOR UNKNOWN INDICATION
     Route: 062
  5. REMODULIN [Concomitant]
     Active Substance: TREPROSTINIL
     Dosage: 84 NG/KG, PER MIN
  6. COUMADIN [Concomitant]
     Active Substance: WARFARIN SODIUM
  7. TADALAFIL [Concomitant]
     Active Substance: TADALAFIL
  8. OPSITE [Suspect]
     Active Substance: POLYURETHANE
     Indication: PRODUCT USED FOR UNKNOWN INDICATION
     Route: 062
  9. CHLORHEXIDINE [Suspect]
     Active Substance: CHLORHEXIDINE
     Indication: PRODUCT USED FOR UNKNOWN INDICATION
     Route: 062

REACTIONS (10)
  - Catheter site urticaria [Unknown]
  - Condition aggravated [Unknown]
  - Dyspnoea [Unknown]
  - Catheter management [Recovered/Resolved]
  - Dizziness [Unknown]
  - Complication associated with device [Recovered/Resolved]
  - Presyncope [Recovering/Resolving]
  - Chest pain [Unknown]
  - Syncope [Unknown]
  - Dyspnoea exertional [Unknown]

NARRATIVE: CASE EVENT DATE: 20111005
